FAERS Safety Report 17177008 (Version 2)
Quarter: 2022Q1

REPORT INFORMATION
  Report Type: Spontaneous
  Country: IN (occurrence: IN)
  Receive Date: 20191219
  Receipt Date: 20220125
  Transmission Date: 20220423
  Serious: Yes (Hospitalization, Other)
  Sender: FDA-Public Use
  Company Number: IN-SUN PHARMACEUTICAL INDUSTRIES LTD-2019R1-230686

PATIENT
  Age: 34 Year
  Sex: Female

DRUGS (1)
  1. CEPHALEXIN [Suspect]
     Active Substance: CEPHALEXIN
     Indication: Upper respiratory tract infection
     Dosage: 500 MILLIGRAM, BID
     Route: 048

REACTIONS (3)
  - Tubulointerstitial nephritis [Recovered/Resolved]
  - Familial periodic paralysis [Recovered/Resolved]
  - Metabolic acidosis [Recovered/Resolved]
